FAERS Safety Report 16088041 (Version 1)
Quarter: 2019Q1

REPORT INFORMATION
  Report Type: Spontaneous
  Country: US (occurrence: US)
  Receive Date: 20190319
  Receipt Date: 20190319
  Transmission Date: 20190418
  Serious: No
  Sender: FDA-Public Use
  Company Number: US-TEVA-2019-US-1020547

PATIENT
  Age: 79 Year
  Sex: Female

DRUGS (1)
  1. HYDROCODONE [Suspect]
     Active Substance: HYDROCODONE
     Route: 065

REACTIONS (4)
  - Crying [Unknown]
  - Pain [Unknown]
  - Abnormal behaviour [Unknown]
  - Screaming [Unknown]
